FAERS Safety Report 4766393-0 (Version None)
Quarter: 2005Q3

REPORT INFORMATION
  Report Type: 
  Country: None (occurrence: None)
  Receive Date: 20050909
  Receipt Date: 20050826
  Transmission Date: 20060218
  Serious: Yes (Hospitalization)
  Sender: FDA-Public Use
  Company Number: 217229

PATIENT
  Age: 45 Year
  Sex: Male

DRUGS (1)
  1. RAPTIVA [Suspect]
     Indication: PSORIASIS
     Dosage: 1.1 ML, 1/WEEK, SUBCUTANEOUS
     Route: 058
     Dates: start: 20041119, end: 20050531

REACTIONS (15)
  - ANAL FISTULA [None]
  - ASTHENIA [None]
  - BRAIN DAMAGE [None]
  - CEREBRAL ISCHAEMIA [None]
  - CHOLESTEATOMA [None]
  - DYSARTHRIA [None]
  - GAIT DISTURBANCE [None]
  - HAEMORRHOIDS [None]
  - HEARING IMPAIRED [None]
  - HEMIPARESIS [None]
  - HEPATIC STEATOSIS [None]
  - HOMOCYSTINAEMIA [None]
  - HYPERTENSIVE CARDIOMYOPATHY [None]
  - MENTAL DISORDER DUE TO A GENERAL MEDICAL CONDITION [None]
  - SPEECH DISORDER [None]
